FAERS Safety Report 8454960-2 (Version None)
Quarter: 2012Q2

REPORT INFORMATION
  Report Type: 
  Country: None (occurrence: None)
  Receive Date: 20120621
  Receipt Date: 20120618
  Transmission Date: 20120825
  Serious: No
  Sender: FDA-Public Use
  Company Number: US-PFIZER INC-2012147142

PATIENT
  Sex: Female

DRUGS (1)
  1. SUTENT [Suspect]
     Indication: LUNG NEOPLASM MALIGNANT
     Dosage: 50 MG, UNK

REACTIONS (2)
  - DISEASE PROGRESSION [None]
  - LUNG NEOPLASM MALIGNANT [None]
